FAERS Safety Report 7818959-9 (Version None)
Quarter: 2011Q4

REPORT INFORMATION
  Report Type: 
  Country: None (occurrence: None)
  Receive Date: 20111017
  Receipt Date: 20111017
  Transmission Date: 20120403
  Serious: Yes (Hospitalization)
  Sender: FDA-Public Use
  Company Number: None

PATIENT
  Age: 74 Year
  Sex: Female

DRUGS (10)
  1. AV-951 [Suspect]
     Indication: COLORECTAL CANCER
     Dosage: 1 MG PO QD
     Route: 048
     Dates: start: 20110323
  2. COMPAZINE [Concomitant]
  3. IMODIUM [Concomitant]
  4. LIPITOR [Concomitant]
  5. VITAMIN B-12 [Concomitant]
  6. POTASSIUM CHLORIDE [Concomitant]
  7. EVEROLIMUS [Suspect]
     Indication: COLORECTAL CANCER
     Dosage: 10 MG PO QD
     Route: 048
     Dates: start: 20110323
  8. AMLODIPINE [Concomitant]
  9. MAGNESIUM OXIDE [Concomitant]
  10. SYNTHROID [Concomitant]

REACTIONS (8)
  - FATIGUE [None]
  - HYPERBILIRUBINAEMIA [None]
  - BLOOD ALKALINE PHOSPHATASE INCREASED [None]
  - DIARRHOEA [None]
  - CHOLELITHIASIS [None]
  - ASPARTATE AMINOTRANSFERASE INCREASED [None]
  - CHILLS [None]
  - ASCITES [None]
